FAERS Safety Report 9601398 (Version 1)
Quarter: 2013Q4

REPORT INFORMATION
  Report Type: Spontaneous
  Country: GB (occurrence: GB)
  Receive Date: 20131007
  Receipt Date: 20131007
  Transmission Date: 20140711
  Serious: Yes (Congenital Anomaly)
  Sender: FDA-Public Use
  Company Number: GB-BIOGENIDEC-2013BI093782

PATIENT
  Sex: 0

DRUGS (1)
  1. AVONEX [Suspect]
     Indication: MATERNAL EXPOSURE TIMING UNSPECIFIED
     Route: 064
     Dates: start: 201005, end: 20130102

REACTIONS (1)
  - Trisomy 21 [Recovered/Resolved]
